FAERS Safety Report 5099945-1 (Version None)
Quarter: 2006Q3

REPORT INFORMATION
  Report Type: 
  Country: None (occurrence: None)
  Receive Date: 20060906
  Receipt Date: 20060824
  Transmission Date: 20061208
  Serious: Yes (Other)
  Sender: FDA-Public Use
  Company Number: SPVI-2006-00556

PATIENT
  Age: 36 Year
  Sex: Male

DRUGS (6)
  1. CARBAMAZEPINE [Suspect]
     Indication: CONVULSION
     Dosage: SEE IMAGE
  2. RITONAVIR (RITONAVIR) [Suspect]
     Indication: HIV INFECTION
     Dosage: 300 MG, 2X/DAY:BID
  3. SAQUINAVIR [Concomitant]
  4. NEVIRAPINE [Concomitant]
  5. PHENYTOIN [Concomitant]
  6. PHENOBARBITAL (ATROPINE SULFATE, PHENOBARBITAL, HYOSCINE HYDROBROMIDE, [Concomitant]

REACTIONS (8)
  - ANTICONVULSANT DRUG LEVEL ABOVE THERAPEUTIC [None]
  - COORDINATION ABNORMAL [None]
  - DIPLOPIA [None]
  - DISORIENTATION [None]
  - DRUG INTERACTION [None]
  - DRUG TOXICITY [None]
  - SOMNOLENCE [None]
  - VERTIGO [None]
